FAERS Safety Report 8715498 (Version 3)
Quarter: 2015Q2

REPORT INFORMATION
  Report Type: Report from Study
  Country: US (occurrence: US)
  Receive Date: 20120809
  Receipt Date: 20150609
  Transmission Date: 20150821
  Serious: Yes (Death)
  Sender: FDA-Public Use
  Company Number: US-ROCHE-1098285

PATIENT
  Sex: Female

DRUGS (1)
  1. ACTIVASE [Suspect]
     Active Substance: ALTEPLASE
     Indication: MYOCARDIAL INFARCTION
     Route: 065
     Dates: start: 20091010

REACTIONS (4)
  - Thrombosis [Fatal]
  - Colitis ischaemic [Fatal]
  - Gastrointestinal necrosis [Fatal]
  - Pulmonary embolism [Fatal]
